FAERS Safety Report 16558728 (Version 2)
Quarter: 2019Q3

REPORT INFORMATION
  Report Type: Spontaneous
  Country: JP (occurrence: JP)
  Receive Date: 20190711
  Receipt Date: 20190903
  Transmission Date: 20191004
  Serious: No
  Sender: FDA-Public Use
  Company Number: JP-JNJFOC-20190709099

PATIENT
  Age: 8 Decade
  Sex: Female

DRUGS (3)
  1. EDIROL [Concomitant]
     Active Substance: ELDECALCITOL
     Route: 048
     Dates: end: 201906
  2. TRAMADOL/APAP [Suspect]
     Active Substance: ACETAMINOPHEN\TRAMADOL
     Indication: FRACTURE PAIN
     Route: 048
     Dates: start: 20190624, end: 20190625
  3. LOXOPROFEN SODIUM [Concomitant]
     Active Substance: LOXOPROFEN SODIUM
     Indication: FRACTURE PAIN
     Dosage: UNKNOWN
     Route: 048
     Dates: start: 201906, end: 201906

REACTIONS (3)
  - Product use in unapproved indication [Unknown]
  - Vomiting [Recovering/Resolving]
  - Off label use [Unknown]

NARRATIVE: CASE EVENT DATE: 20190624
